FAERS Safety Report 9413008 (Version 1)
Quarter: 2013Q3

REPORT INFORMATION
  Report Type: Spontaneous
  Country: US (occurrence: US)
  Receive Date: 20130722
  Receipt Date: 20130722
  Transmission Date: 20140515
  Serious: Yes (Other)
  Sender: FDA-Public Use
  Company Number: US-GLAXOSMITHKLINE-A1033112A

PATIENT
  Age: 49 Year
  Sex: Female

DRUGS (14)
  1. ARIXTRA [Suspect]
     Indication: CEREBRAL VENOUS THROMBOSIS
     Dosage: 7.5MG PER DAY
     Route: 058
     Dates: start: 201306
  2. MICAFUNGIN [Concomitant]
  3. PENICILLIN [Concomitant]
  4. GANCYCLOVIR [Concomitant]
  5. TACROLIMUS [Concomitant]
  6. LASIX [Concomitant]
  7. SYNTHROID [Concomitant]
  8. OMEPRAZOLE [Concomitant]
  9. MAGNESIUM [Concomitant]
  10. CHOLECALCIFEROL [Concomitant]
  11. LYRICA [Concomitant]
  12. DILAUDID [Concomitant]
  13. AMITRIPTYLINE [Concomitant]
  14. DURAGESIC [Concomitant]

REACTIONS (1)
  - Heparin-induced thrombocytopenia [Not Recovered/Not Resolved]
